FAERS Safety Report 6329839-2 (Version None)
Quarter: 2009Q3

REPORT INFORMATION
  Report Type: 
  Country: None (occurrence: None)
  Receive Date: 20090826
  Receipt Date: 20090817
  Transmission Date: 20100115
  Serious: Yes (Hospitalization, Other)
  Sender: FDA-Public Use
  Company Number: US-WYE-H10606809

PATIENT
  Age: 44 Year
  Sex: Female

DRUGS (2)
  1. PRISTIQ [Suspect]
     Dosage: DECLINED
     Route: 048
  2. COUMADIN [Interacting]
     Dosage: UNKNOWN DOSE DAILY
     Route: 048

REACTIONS (3)
  - CEREBROVASCULAR ACCIDENT [None]
  - DRUG INTERACTION [None]
  - HYPERHIDROSIS [None]
